FAERS Safety Report 13190613 (Version 1)
Quarter: 2017Q1

REPORT INFORMATION
  Report Type: Other
  Country: US (occurrence: US)
  Receive Date: 20170206
  Receipt Date: 20170206
  Transmission Date: 20170428
  Serious: Yes (Hospitalization)
  Sender: FDA-Public Use
  Company Number: US-AIRGAS USA-1062800

PATIENT
  Age: 40 Year
  Sex: Male

DRUGS (2)
  1. NITROUS OXIDE. [Suspect]
     Active Substance: NITROUS OXIDE
     Indication: DRUG ABUSE
  2. OXYGEN. [Concomitant]
     Active Substance: OXYGEN

REACTIONS (6)
  - Neuropathy peripheral [Unknown]
  - Occupational exposure to product [Unknown]
  - Aphasia [Unknown]
  - Amnesia [Unknown]
  - Drug abuse [Unknown]
  - Lhermitte^s sign [Unknown]
